FAERS Safety Report 17567497 (Version 1)
Quarter: 2020Q1

REPORT INFORMATION
  Report Type: Spontaneous
  Country: JP (occurrence: JP)
  Receive Date: 20200320
  Receipt Date: 20200320
  Transmission Date: 20200409
  Serious: Yes (Other)
  Sender: FDA-Public Use
  Company Number: JP-JNJFOC-20200325613

PATIENT

DRUGS (1)
  1. REMICADE [Suspect]
     Active Substance: INFLIXIMAB
     Indication: PRODUCT USED FOR UNKNOWN INDICATION
     Route: 064

REACTIONS (5)
  - Foetal growth restriction [Unknown]
  - Foetal heart rate decreased [Unknown]
  - Foetal exposure during pregnancy [Recovered/Resolved]
  - Haemorrhage neonatal [Unknown]
  - Premature baby [Unknown]
